FAERS Safety Report 5310647-6 (Version None)
Quarter: 2007Q1

REPORT INFORMATION
  Report Type: 
  Country: None (occurrence: None)
  Receive Date: 20070201
  Receipt Date: 20061027
  Transmission Date: 20070707
  Serious: No
  Sender: FDA-Public Use
  Company Number: 258125

PATIENT
  Age: 64 Year
  Sex: Male
  Weight: 117.9 kg

DRUGS (8)
  1. LEVEMIR [Suspect]
     Indication: INSULIN-REQUIRING TYPE II DIABETES MELLITUS
     Dosage: SEE IMAGE
     Route: 058
     Dates: start: 20060901, end: 20061001
  2. LEVEMIR [Suspect]
  3. GLYSET (MIGLITOL) [Concomitant]
  4. COZAAR [Concomitant]
  5. CRESTOR [Concomitant]
  6. COREG [Concomitant]
  7. AMBIEN [Concomitant]
  8. SPIRONOLACTONE [Concomitant]

REACTIONS (3)
  - BLOOD GLUCOSE INCREASED [None]
  - INJECTION SITE BRUISING [None]
  - MEDICAL DEVICE COMPLICATION [None]
